FAERS Safety Report 24940629 (Version 2)
Quarter: 2025Q1

REPORT INFORMATION
  Report Type: Spontaneous
  Country: FR (occurrence: FR)
  Receive Date: 20250207
  Receipt Date: 20250212
  Transmission Date: 20250409
  Serious: Yes (Death, Other)
  Sender: AUROBINDO
  Company Number: FR-AUROBINDO-AUR-APL-2025-006457

PATIENT
  Age: 32 Year
  Sex: Female

DRUGS (1)
  1. CELECOXIB [Suspect]
     Active Substance: CELECOXIB
     Indication: Rheumatoid arthritis
     Route: 048
     Dates: start: 20241226, end: 20241228

REACTIONS (1)
  - Death [Fatal]

NARRATIVE: CASE EVENT DATE: 20250104
